FAERS Safety Report 16250256 (Version 1)
Quarter: 2019Q2

REPORT INFORMATION
  Report Type: Spontaneous
  Country: US (occurrence: US)
  Receive Date: 20190326
  Receipt Date: 20190326
  Transmission Date: 20190711
  Serious: No
  Sender: FDA-Public Use
  Company Number: None

PATIENT
  Age: 41 Year
  Sex: Female

DRUGS (1)
  1. SIROLIMUS 0.5MG GREENSTONE LTD [Suspect]
     Active Substance: SIROLIMUS
     Indication: HEART TRANSPLANT
     Route: 048
     Dates: start: 20181228

REACTIONS (5)
  - Stomatitis [None]
  - Skin lesion [None]
  - Dysphagia [None]
  - Abdominal pain upper [None]
  - Diarrhoea [None]

NARRATIVE: CASE EVENT DATE: 20181228
